FAERS Safety Report 25173642 (Version 7)
Quarter: 2025Q4

REPORT INFORMATION
  Report Type: Spontaneous
  Country: CA (occurrence: CA)
  Receive Date: 20250408
  Receipt Date: 20251110
  Transmission Date: 20260118
  Serious: Yes (Other)
  Sender: ALEXION PHARMACEUTICALS
  Company Number: CA-AstraZeneca-CH-00760695A

PATIENT
  Age: 24 Year
  Sex: Female

DRUGS (8)
  1. SOLIRIS [Suspect]
     Active Substance: ECULIZUMAB
     Indication: Neuromyelitis optica spectrum disorder
     Dosage: UNK
  2. FERROUS SULFATE [Concomitant]
     Active Substance: FERROUS SULFATE
     Indication: Iron deficiency anaemia
     Dosage: 300 MILLIGRAM, QD
     Dates: start: 20240611
  3. PREGABALIN [Concomitant]
     Active Substance: PREGABALIN
     Indication: Pain in extremity
     Dosage: 300 MILLIGRAM, QD
     Dates: start: 2022, end: 202410
  4. PREGABALIN [Concomitant]
     Active Substance: PREGABALIN
     Dosage: 200 MILLIGRAM, BID
     Dates: start: 20240411
  5. FERROUS SULFATE [Concomitant]
     Active Substance: FERROUS SULFATE
     Dosage: 300 MILLIGRAM, BID
     Dates: start: 20220902
  6. FERROUS SULFATE [Concomitant]
     Active Substance: FERROUS SULFATE
     Dosage: 300 MILLIGRAM, QD
     Dates: start: 20240911
  7. VITAMIN D [Concomitant]
     Active Substance: VITAMIN D NOS
     Dosage: 2000 INTERNATIONAL UNIT
  8. VITAMIN D [Concomitant]
     Active Substance: VITAMIN D NOS
     Dosage: 50000 INTERNATIONAL UNIT

REACTIONS (5)
  - Abortion spontaneous [Unknown]
  - Exposure during pregnancy [Recovered/Resolved]
  - Antinuclear antibody positive [Unknown]
  - Anaemia [Unknown]
  - Iron deficiency anaemia [Unknown]

NARRATIVE: CASE EVENT DATE: 20241212
